FAERS Safety Report 17904048 (Version 1)
Quarter: 2020Q2

REPORT INFORMATION
  Report Type: Spontaneous
  Country: US (occurrence: US)
  Receive Date: 20200617
  Receipt Date: 20200617
  Transmission Date: 20200714
  Serious: No
  Sender: FDA-Public Use
  Company Number: NVSC2020US168297

PATIENT
  Sex: Male

DRUGS (1)
  1. TOBRADEX [Suspect]
     Active Substance: DEXAMETHASONE\TOBRAMYCIN
     Indication: EYE PRURITUS
     Dosage: UNK
     Route: 065

REACTIONS (6)
  - Ocular discomfort [Not Recovered/Not Resolved]
  - Eye pruritus [Unknown]
  - Drug ineffective [Unknown]
  - Eye swelling [Unknown]
  - Ocular hyperaemia [Unknown]
  - Hypersensitivity [Not Recovered/Not Resolved]
